FAERS Safety Report 8545808-6 (Version None)
Quarter: 2012Q3

REPORT INFORMATION
  Report Type: 
  Country: None (occurrence: None)
  Receive Date: 20120727
  Receipt Date: 20120719
  Transmission Date: 20120928
  Serious: Yes (Other)
  Sender: FDA-Public Use
  Company Number: CN-BAXTER-2012BAX012207

PATIENT
  Sex: Female
  Weight: 52.5 kg

DRUGS (5)
  1. 5% GLUCOSE  INJECTION [Suspect]
     Route: 041
     Dates: start: 20090728, end: 20090729
  2. 5% GLUCOSE  INJECTION [Suspect]
     Route: 041
     Dates: start: 20090728
  3. 5% GLUCOSE  INJECTION [Suspect]
     Route: 041
     Dates: start: 20090729
  4. 10% GLUCOSE  INJECTION [Suspect]
     Route: 041
     Dates: start: 20090728, end: 20090729
  5. SODIUM LACTATE RINGER'S INJECTION 500ML [Suspect]
     Route: 041
     Dates: start: 20090728, end: 20090729

REACTIONS (1)
  - ANAPHYLACTOID REACTION [None]
